FAERS Safety Report 6880223-2 (Version None)
Quarter: 2010Q3

REPORT INFORMATION
  Report Type: 
  Country: None (occurrence: None)
  Receive Date: 20100728
  Receipt Date: 20100716
  Transmission Date: 20110219
  Serious: Yes (Hospitalization, Other)
  Sender: FDA-Public Use
  Company Number: US-SANOFI-AVENTIS-2010SA042150

PATIENT
  Age: 65 Year
  Sex: Female

DRUGS (5)
  1. AMBIEN [Suspect]
     Indication: SLEEP DISORDER
     Route: 048
     Dates: end: 20080101
  2. AMBIEN [Suspect]
     Indication: PAIN
     Route: 048
     Dates: end: 20080101
  3. ZOLPIDEM TARTRATE [Suspect]
     Indication: SLEEP DISORDER
     Route: 048
     Dates: start: 20080101
  4. ZOLPIDEM TARTRATE [Suspect]
     Indication: PAIN
     Route: 048
     Dates: start: 20080101
  5. XANAX [Concomitant]

REACTIONS (10)
  - ABDOMINAL DISCOMFORT [None]
  - AORTIC VALVE DISEASE [None]
  - CENTRAL PAIN SYNDROME [None]
  - DRUG ABUSE [None]
  - DRUG INEFFECTIVE [None]
  - NEURALGIA [None]
  - OFF LABEL USE [None]
  - PRODUCT MEASURED POTENCY ISSUE [None]
  - SYSTEMIC LUPUS ERYTHEMATOSUS [None]
  - THERAPEUTIC RESPONSE UNEXPECTED [None]
